FAERS Safety Report 11405699 (Version 3)
Quarter: 2016Q1

REPORT INFORMATION
  Report Type: Report from Study
  Country: US (occurrence: US)
  Receive Date: 20150821
  Receipt Date: 20160216
  Transmission Date: 20160525
  Serious: Yes (Other)
  Sender: FDA-Public Use
  Company Number: US-AMGEN-USASP2015083419

PATIENT
  Age: 67 Year
  Sex: Female

DRUGS (1)
  1. PROLIA [Suspect]
     Active Substance: DENOSUMAB
     Indication: OSTEOPOROSIS POSTMENOPAUSAL
     Dosage: UNK, Q6MO
     Route: 065

REACTIONS (14)
  - Pruritus [Not Recovered/Not Resolved]
  - Urticaria [Unknown]
  - Dry mouth [Unknown]
  - Spinal operation [Recovering/Resolving]
  - Osteonecrosis of jaw [Unknown]
  - Dysphonia [Unknown]
  - Blood calcium decreased [Unknown]
  - Shoulder arthroplasty [Unknown]
  - Cough [Unknown]
  - Herpes zoster [Recovered/Resolved]
  - Fall [Unknown]
  - Jaw disorder [Unknown]
  - Tooth disorder [Unknown]
  - Hypoaesthesia [Unknown]

NARRATIVE: CASE EVENT DATE: 2015
